FAERS Safety Report 6399653-0 (Version None)
Quarter: 2009Q4

REPORT INFORMATION
  Report Type: 
  Country: None (occurrence: None)
  Receive Date: 20091009
  Receipt Date: 20091009
  Transmission Date: 20100525
  Serious: Yes (Hospitalization)
  Sender: FDA-Public Use
  Company Number: None

PATIENT
  Age: 62 Year
  Sex: Female
  Weight: 76.3 kg

DRUGS (13)
  1. IMMUNE GLOBULIN INTRAVENOUS (HUMAN) [Suspect]
     Indication: KIDNEY TRANSPLANT REJECTION
     Dosage: 80GM (10%) ONCE IV
     Route: 042
     Dates: start: 20090925
  2. SOLU-MEDROL [Concomitant]
  3. MYCOPHENOLATE MOFETIL [Concomitant]
  4. RABEPRAZOLE [Concomitant]
  5. TRAVOPROST [Concomitant]
  6. PREDNISONE TAB [Concomitant]
  7. TACROLIMUS [Concomitant]
  8. LABETALOL HCL [Concomitant]
  9. VITAMIN D [Concomitant]
  10. ASPIRIN [Concomitant]
  11. BIOTIN [Concomitant]
  12. MULTI-VITAMIN [Concomitant]
  13. HYDROCHLOROTHIAZIDE [Concomitant]

REACTIONS (3)
  - HEADACHE [None]
  - NAUSEA [None]
  - VOMITING [None]
